FAERS Safety Report 19504614 (Version 2)
Quarter: 2021Q4

REPORT INFORMATION
  Report Type: Report from Study
  Country: US (occurrence: US)
  Receive Date: 20210707
  Receipt Date: 20211001
  Transmission Date: 20220303
  Serious: Yes (Hospitalization, Other)
  Sender: FDA-Public Use
  Company Number: US-SEATTLE GENETICS-2020SGN02087

PATIENT
  Sex: Female

DRUGS (7)
  1. TUCATINIB [Suspect]
     Active Substance: TUCATINIB
     Indication: Product used for unknown indication
     Dosage: 150 MG, BID
     Route: 048
     Dates: end: 20200617
  2. TUCATINIB [Suspect]
     Active Substance: TUCATINIB
     Dosage: 300 MG, BID
  3. TUCATINIB [Suspect]
     Active Substance: TUCATINIB
     Dosage: 250 MG, BID
  4. TUCATINIB [Suspect]
     Active Substance: TUCATINIB
     Dosage: 4 DF, BID
  5. TUCATINIB [Suspect]
     Active Substance: TUCATINIB
     Dosage: 50 MG, UNK
  6. CAPECITABINE [Suspect]
     Active Substance: CAPECITABINE
     Indication: Product used for unknown indication
     Dosage: 3 DF, BID
  7. CAPECITABINE [Suspect]
     Active Substance: CAPECITABINE
     Dosage: 3 PILLS IN THE MORNING AND 2 IN THE EVENING

REACTIONS (15)
  - Hepatotoxicity [Recovered/Resolved]
  - Road traffic accident [Unknown]
  - Spinal fracture [Unknown]
  - Spinal operation [Unknown]
  - Unresponsive to stimuli [Unknown]
  - Pain [Unknown]
  - Feeling abnormal [Unknown]
  - Amnesia [Unknown]
  - Incorrect dose administered [Unknown]
  - Unevaluable event [Unknown]
  - Liver function test increased [Unknown]
  - Hepatic enzyme increased [Unknown]
  - Diarrhoea [Unknown]
  - Abdominal pain [Unknown]
  - Nausea [Unknown]
